FAERS Safety Report 9109505 (Version 1)
Quarter: 2013Q1

REPORT INFORMATION
  Report Type: Spontaneous
  Country: BR (occurrence: BR)
  Receive Date: 20130222
  Receipt Date: 20130222
  Transmission Date: 20140127
  Serious: Yes (Disabling)
  Sender: FDA-Public Use
  Company Number: PHHY2013BR017373

PATIENT
  Sex: Male
  Weight: 76 kg

DRUGS (4)
  1. COMTAN [Suspect]
     Indication: PARKINSON^S DISEASE
     Dosage: 0.5 DF, DAILY
  2. COMTAN [Suspect]
     Dosage: 1 DF, TID
  3. SIFROL [Concomitant]
     Indication: PARKINSON^S DISEASE
     Dosage: 0.5 DF, DAILY
     Route: 048
  4. PROLOPA [Concomitant]
     Indication: PARKINSON^S DISEASE
     Dosage: 1 DF, TID
     Route: 048

REACTIONS (4)
  - Abasia [Unknown]
  - Limb discomfort [Unknown]
  - Wrong technique in drug usage process [Unknown]
  - Treatment noncompliance [None]
